FAERS Safety Report 9849011 (Version 2)
Quarter: 2014Q1

REPORT INFORMATION
  Report Type: Spontaneous
  Country: CN (occurrence: None)
  Receive Date: 20140124
  Receipt Date: 20140218
  Transmission Date: 20141002
  Serious: Yes (Hospitalization)
  Sender: FDA-Public Use
  Company Number: IPC201401-000033

PATIENT
  Age: 86 Year
  Sex: Female

DRUGS (5)
  1. METFORMIN HYDROCHLORIDE [Suspect]
     Indication: TYPE 2 DIABETES MELLITUS
     Dosage: 1 G THREE TIMES DAILY
  2. POLYETHYLENE GLYCOL [Suspect]
     Indication: BOWEL PREPARATION
  3. GLICLAZIDE [Suspect]
     Indication: TYPE 2 DIABETES MELLITUS
     Dosage: 120 MG/DAY
  4. METRONIDOZOLE (METRONIDAZOLE) (METRONIDAZOLE) [Concomitant]
  5. CEFUROXIME (CEFUROXIME) (CEFUROXIME) [Concomitant]
     Indication: TYPE 2 DIABETES MELLITUS

REACTIONS (6)
  - Lactic acidosis [None]
  - Dizziness [None]
  - Vomiting [None]
  - Metabolic acidosis [None]
  - Haemodialysis [None]
  - Klebsiella infection [None]
